FAERS Safety Report 15196827 (Version 5)
Quarter: 2019Q2

REPORT INFORMATION
  Report Type: Report from Study
  Country: US (occurrence: US)
  Receive Date: 20180725
  Receipt Date: 20190529
  Transmission Date: 20190711
  Serious: No
  Sender: FDA-Public Use
  Company Number: PHEH2018US029983

PATIENT
  Age: 50 Year
  Sex: Female

DRUGS (1)
  1. GILENYA [Suspect]
     Active Substance: FINGOLIMOD HYDROCHLORIDE
     Indication: MULTIPLE SCLEROSIS
     Dosage: 0.5 MG, QD
     Route: 048
     Dates: start: 20180328

REACTIONS (13)
  - Herpes zoster [Recovering/Resolving]
  - Muscle spasms [Unknown]
  - Tremor [Unknown]
  - Pain [Not Recovered/Not Resolved]
  - Decreased interest [Unknown]
  - Fatigue [Unknown]
  - Headache [Unknown]
  - Liver function test increased [Recovered/Resolved]
  - Pain of skin [Recovering/Resolving]
  - Depression [Unknown]
  - Depressed mood [Unknown]
  - Hypoaesthesia [Unknown]
  - Psychomotor hyperactivity [Recovering/Resolving]

NARRATIVE: CASE EVENT DATE: 201804
